FAERS Safety Report 25149229 (Version 4)
Quarter: 2025Q2

REPORT INFORMATION
  Report Type: Spontaneous
  Country: US (occurrence: US)
  Receive Date: 20250402
  Receipt Date: 20250417
  Transmission Date: 20250716
  Serious: No
  Sender: BIOGEN
  Company Number: US-BIOGEN-2025BI01306083

PATIENT
  Age: 61 Year
  Sex: Female

DRUGS (26)
  1. VUMERITY [Suspect]
     Active Substance: DIROXIMEL FUMARATE
     Indication: Multiple sclerosis
     Route: 050
     Dates: start: 20240924
  2. VUMERITY [Suspect]
     Active Substance: DIROXIMEL FUMARATE
     Route: 050
  3. AMLODIPINE [Concomitant]
     Active Substance: AMLODIPINE BESYLATE
     Route: 050
  4. ATORVASTATIN [Concomitant]
     Active Substance: ATORVASTATIN
     Route: 050
  5. BENADRYL [Concomitant]
     Active Substance: DIPHENHYDRAMINE HYDROCHLORIDE
     Route: 050
  6. CITALOPRAM [Concomitant]
     Active Substance: CITALOPRAM
     Route: 050
  7. CITALOPRAM [Concomitant]
     Active Substance: CITALOPRAM
     Route: 050
  8. CITALOPRAM [Concomitant]
     Active Substance: CITALOPRAM
     Route: 050
  9. CLOBETASOL [Concomitant]
     Active Substance: CLOBETASOL
     Route: 050
  10. FAMOTIDINE [Concomitant]
     Active Substance: FAMOTIDINE
     Route: 050
  11. GABAPENTIN [Concomitant]
     Active Substance: GABAPENTIN
     Route: 050
  12. GABAPENTIN [Concomitant]
     Active Substance: GABAPENTIN
     Route: 050
  13. HYDROXYZINE [Concomitant]
     Active Substance: HYDROXYZINE HYDROCHLORIDE
     Route: 050
  14. IBUPROFEN [Concomitant]
     Active Substance: IBUPROFEN
     Route: 050
  15. INSULIN ASPART [Concomitant]
     Active Substance: INSULIN ASPART
     Route: 050
  16. LANTUS [Concomitant]
     Active Substance: INSULIN GLARGINE
     Route: 050
  17. LAMOTRIGINE [Concomitant]
     Active Substance: LAMOTRIGINE
     Route: 050
  18. LISINOPRIL [Concomitant]
     Active Substance: LISINOPRIL
     Route: 050
  19. LORATADINE [Concomitant]
     Active Substance: LORATADINE
     Route: 050
  20. METFORMIN HYDROCHLORIDE [Concomitant]
     Active Substance: METFORMIN HYDROCHLORIDE
     Route: 050
  21. METOPROLOL [Concomitant]
     Active Substance: METOPROLOL
     Route: 050
  22. SUDAFED [Concomitant]
     Active Substance: PSEUDOEPHEDRINE HYDROCHLORIDE
     Route: 050
  23. TIMOLOL MALE [Concomitant]
     Route: 050
  24. TYLENOL [Concomitant]
     Active Substance: ACETAMINOPHEN
     Route: 050
  25. VITAMIN D [Concomitant]
     Active Substance: VITAMIN D NOS
     Route: 050
  26. DUPIXENT [Concomitant]
     Active Substance: DUPILUMAB
     Route: 050

REACTIONS (3)
  - Cough [Unknown]
  - Choking [Unknown]
  - Illness [Recovered/Resolved]

NARRATIVE: CASE EVENT DATE: 20250401
